FAERS Safety Report 7543718-4 (Version None)
Quarter: 2011Q2

REPORT INFORMATION
  Report Type: 
  Country: None (occurrence: None)
  Receive Date: 20110613
  Receipt Date: 20040106
  Transmission Date: 20111010
  Serious: Yes (Death)
  Sender: FDA-Public Use
  Company Number: PHHO2003TR16378

PATIENT
  Age: 26 Year
  Sex: Male
  Weight: 66 kg

DRUGS (2)
  1. DELTACORTRIL [Concomitant]
     Indication: RENAL TRANSPLANT
     Dates: start: 20030304
  2. NEORAL [Suspect]
     Indication: RENAL TRANSPLANT
     Dosage: 275 MG, DAILY
     Dates: start: 20030304

REACTIONS (1)
  - PULMONARY EMBOLISM [None]
